FAERS Safety Report 8550141-2 (Version None)
Quarter: 2012Q3

REPORT INFORMATION
  Report Type: 
  Country: None (occurrence: None)
  Receive Date: 20120730
  Receipt Date: 20110412
  Transmission Date: 20120928
  Serious: No
  Sender: FDA-Public Use
  Company Number: US-ALLERGAN-1102379US

PATIENT
  Age: 89 Year
  Sex: Male

DRUGS (19)
  1. TERAZIN [Concomitant]
  2. XALATAN [Concomitant]
  3. OMEPRAZOLE [Concomitant]
  4. VITAMIN B-12 [Concomitant]
  5. MULTIVITAMIN                       /00097801/ [Concomitant]
  6. FINASTERIDE [Concomitant]
  7. ALLOPURINOL [Concomitant]
  8. METOPROLOL TARTRATE [Concomitant]
  9. ALPHAGAN [Concomitant]
  10. POTASSIUM CHLORIDE [Concomitant]
  11. PREDNISONE [Concomitant]
  12. CLONIDINE [Concomitant]
  13. COSOPT [Concomitant]
  14. FERREX [Concomitant]
  15. LUMIGAN [Suspect]
     Indication: GLAUCOMA
     Dosage: UNK
     Dates: start: 20101227, end: 20110104
  16. FUROSEMIDE [Concomitant]
  17. CALCIUM CARBONATE [Concomitant]
  18. HYDROCHLOROTHIAZIDE [Concomitant]
  19. GABAPENTIN [Concomitant]

REACTIONS (3)
  - FOREIGN BODY SENSATION IN EYES [None]
  - EYE IRRITATION [None]
  - VISION BLURRED [None]
